FAERS Safety Report 5745250-7 (Version None)
Quarter: 2008Q2

REPORT INFORMATION
  Report Type: 
  Country: None (occurrence: None)
  Receive Date: 20080521
  Receipt Date: 20080519
  Transmission Date: 20081010
  Serious: Yes (Other)
  Sender: FDA-Public Use
  Company Number: B0521297A

PATIENT
  Age: 34 Year
  Sex: Female

DRUGS (1)
  1. LAMICTAL [Suspect]
     Route: 065
     Dates: start: 20080101

REACTIONS (4)
  - EPISTAXIS [None]
  - HEADACHE [None]
  - MENSTRUATION IRREGULAR [None]
  - SUICIDAL IDEATION [None]
